FAERS Safety Report 20248309 (Version 1)
Quarter: 2021Q4

REPORT INFORMATION
  Report Type: Spontaneous
  Country: US (occurrence: None)
  Receive Date: 20211228
  Receipt Date: 20211228
  Transmission Date: 20220303
  Serious: Yes (Hospitalization)
  Sender: FDA-Public Use
  Company Number: None

PATIENT
  Age: 78 Year
  Sex: Male

DRUGS (1)
  1. HEPARIN CALCIUM [Suspect]
     Active Substance: HEPARIN CALCIUM
     Indication: Catheterisation cardiac
     Dosage: 13,000 UNITS  ONCE  IV?
     Route: 042
     Dates: start: 20211118, end: 20211118

REACTIONS (3)
  - Haematoma [None]
  - Shock haemorrhagic [None]
  - Hypotension [None]

NARRATIVE: CASE EVENT DATE: 20211118
